FAERS Safety Report 16663874 (Version 2)
Quarter: 2021Q3

REPORT INFORMATION
  Report Type: Spontaneous
  Country: US (occurrence: US)
  Receive Date: 20190802
  Receipt Date: 20210720
  Transmission Date: 20211014
  Serious: Yes (Death, Life-Threatening, Hospitalization, Other)
  Sender: FDA-Public Use
  Company Number: PHHY2019US177793

PATIENT
  Age: 22 Year
  Sex: Female
  Weight: 80.4 kg

DRUGS (7)
  1. KYMRIAH [Suspect]
     Active Substance: TISAGENLECLEUCEL
     Indication: ACUTE LYMPHOCYTIC LEUKAEMIA REFRACTORY
     Dosage: 1.4X 10^6
     Route: 042
     Dates: start: 20180821
  2. AMLODIPINE [Concomitant]
     Active Substance: AMLODIPINE BESYLATE
     Indication: PRODUCT USED FOR UNKNOWN INDICATION
     Dosage: UNK
     Route: 065
  3. CYCLOPHOSPHAMIDE. [Concomitant]
     Active Substance: CYCLOPHOSPHAMIDE
     Indication: PRODUCT USED FOR UNKNOWN INDICATION
     Dosage: 500 MG/M2, UNK
     Route: 065
     Dates: start: 20160813, end: 20160816
  4. FLUDARABINE [Concomitant]
     Active Substance: FLUDARABINE PHOSPHATE
     Indication: CHEMOTHERAPY
     Dosage: 30 MG/M2, UNK
     Route: 065
     Dates: start: 20180813, end: 20180814
  5. DEXEMEDETOMIDINE [Concomitant]
     Active Substance: DEXMEDETOMIDINE
     Indication: PRODUCT USED FOR UNKNOWN INDICATION
     Route: 065
  6. CEFEPIME [Concomitant]
     Active Substance: CEFEPIME HYDROCHLORIDE
     Indication: PRODUCT USED FOR UNKNOWN INDICATION
     Route: 065
  7. NICARDIPINE [Concomitant]
     Active Substance: NICARDIPINE
     Indication: HYPERTENSION
     Dosage: UNK
     Route: 065

REACTIONS (25)
  - Oliguria [Unknown]
  - Pyrexia [Unknown]
  - Capillary leak syndrome [Unknown]
  - Disorientation [Unknown]
  - Coagulopathy [Unknown]
  - B-cell aplasia [Unknown]
  - Hypotension [Unknown]
  - Renal tubular necrosis [Unknown]
  - Fluid overload [Unknown]
  - Intensive care unit delirium [Unknown]
  - Blood creatine phosphokinase increased [Unknown]
  - Respiratory failure [Unknown]
  - Acute kidney injury [Recovered/Resolved]
  - Multiple organ dysfunction syndrome [Unknown]
  - Glomerular filtration rate decreased [Recovering/Resolving]
  - Blood creatinine increased [Recovered/Resolved]
  - Encephalopathy [Recovered/Resolved]
  - Hypertension [Unknown]
  - Death [Fatal]
  - Myoglobinuria [Unknown]
  - Hypoxia [Unknown]
  - Physical deconditioning [Unknown]
  - Cytokine release syndrome [Recovered/Resolved]
  - Blood fibrinogen decreased [Unknown]
  - Agitation [Recovering/Resolving]

NARRATIVE: CASE EVENT DATE: 20180823
